FAERS Safety Report 6756193-4 (Version None)
Quarter: 2010Q2

REPORT INFORMATION
  Report Type: 
  Country: None (occurrence: None)
  Receive Date: 20100604
  Receipt Date: 20100524
  Transmission Date: 20101027
  Serious: Yes (Other)
  Sender: FDA-Public Use
  Company Number: PHHY2010CA33896

PATIENT

DRUGS (4)
  1. ALISKIREN ALI+ [Suspect]
     Dosage: 300MG EVERY DAY
  2. BETA BLOCKING AGENTS [Concomitant]
  3. DIURETICS [Concomitant]
  4. ANGIOTENSIN II ANTAGONISTS [Concomitant]

REACTIONS (2)
  - BLOOD CREATININE INCREASED [None]
  - URINE ALBUMIN/CREATININE RATIO INCREASED [None]
